FAERS Safety Report 4387849-9 (Version None)
Quarter: 2004Q2

REPORT INFORMATION
  Report Type: 
  Country: None (occurrence: None)
  Receive Date: 20040630
  Receipt Date: 20040618
  Transmission Date: 20050107
  Serious: Yes (Other)
  Sender: FDA-Public Use
  Company Number: PHNR2004AU01117

PATIENT
  Age: 52 Year
  Sex: Male

DRUGS (2)
  1. CLOZARIL [Suspect]
     Indication: SCHIZOPHRENIA
     Dosage: 25 - 900 MG/DAY
     Dates: start: 19940217, end: 20040621
  2. VALPROATE SODIUM [Concomitant]

REACTIONS (6)
  - ATAXIA [None]
  - CEREBRAL INFARCTION [None]
  - FALL [None]
  - NEUTROPENIA [None]
  - PANCYTOPENIA [None]
  - WHITE BLOOD CELL COUNT DECREASED [None]
